FAERS Safety Report 20091748 (Version 1)
Quarter: 2021Q4

REPORT INFORMATION
  Report Type: Spontaneous
  Country: CA (occurrence: CA)
  Receive Date: 20211119
  Receipt Date: 20211119
  Transmission Date: 20220303
  Serious: Yes (Hospitalization, Other)
  Sender: FDA-Public Use
  Company Number: CA-TEVA-2021-CA-1978558

PATIENT
  Age: 50 Year
  Sex: Male

DRUGS (5)
  1. LAMOTRIGINE [Suspect]
     Active Substance: LAMOTRIGINE
     Indication: Affective disorder
     Dosage: 2 DOSAGE FORMS DAILY;
     Route: 048
  2. ATORVASTATIN [Concomitant]
     Active Substance: ATORVASTATIN
  3. CHLORTHALIDONE [Concomitant]
     Active Substance: CHLORTHALIDONE
  4. RAMIPRIL [Concomitant]
     Active Substance: RAMIPRIL
  5. TAMSULOSIN [Concomitant]
     Active Substance: TAMSULOSIN

REACTIONS (12)
  - Back pain [Unknown]
  - Chest discomfort [Unknown]
  - Dyspnoea [Unknown]
  - Fatigue [Unknown]
  - Fatigue [Unknown]
  - Headache [Unknown]
  - Neck pain [Unknown]
  - Photophobia [Unknown]
  - Pruritus [Unknown]
  - Rash [Unknown]
  - Rash [Unknown]
  - Product use in unapproved indication [Unknown]
